FAERS Safety Report 10511096 (Version 1)
Quarter: 2014Q4

REPORT INFORMATION
  Report Type: Spontaneous
  Country: US (occurrence: US)
  Receive Date: 20141010
  Receipt Date: 20141010
  Transmission Date: 20150528
  Serious: No
  Sender: FDA-Public Use
  Company Number: US-PFIZER INC-2014277037

PATIENT
  Age: 47 Year
  Sex: Female
  Weight: 79.37 kg

DRUGS (15)
  1. OXYCODONE [Concomitant]
     Active Substance: OXYCODONE
     Dosage: 20 MG, 3X/DAY
  2. PREDNISONE. [Concomitant]
     Active Substance: PREDNISONE
     Dosage: 5 MG, 1X/DAY
  3. LYRICA [Suspect]
     Active Substance: PREGABALIN
     Indication: NEUROPATHY PERIPHERAL
  4. PROTONIX [Concomitant]
     Active Substance: PANTOPRAZOLE SODIUM
     Indication: NEOPLASM MALIGNANT
     Dosage: 40 MG, 2X/DAY
  5. TAMOXIFEN [Concomitant]
     Active Substance: TAMOXIFEN
     Indication: NEOPLASM MALIGNANT
     Dosage: 20 MG, 1X/DAY
  6. MIRALAX [Concomitant]
     Active Substance: POLYETHYLENE GLYCOL 3350
     Dosage: ONCE A DAY OR THREE TIMES A DAY AS NEEDED
  7. TOPAMAX [Concomitant]
     Active Substance: TOPIRAMATE
     Dosage: 100MG IN AM 200MG EVENING
  8. TORSEMIDE. [Concomitant]
     Active Substance: TORSEMIDE
     Dosage: 20 MG, 1X/DAY
  9. POTASSIUM [Concomitant]
     Active Substance: POTASSIUM
     Dosage: 10 MG, (THREE TIMES IN MORNING AND THREE TIMES IN AFTERNOON)
  10. TIZANIDINE (TIZANIDINE) [Concomitant]
     Active Substance: TIZANIDINE
     Dosage: 4MG 1-2 TABLETS AT BED TIME AS NEEDED
  11. SEROQUEL [Concomitant]
     Active Substance: QUETIAPINE FUMARATE
     Dosage: 300 MG, 1X/DAY(AT BEDTIME)
  12. SENNA [Concomitant]
     Active Substance: SENNA LEAF\SENNOSIDES\SENNOSIDES A AND B
     Dosage: 300 MG, 1X/DAY(2 TABLETS BY MOUTH IN EVENING)
     Route: 048
  13. PHENERGAN [Concomitant]
     Active Substance: PROMETHAZINE HYDROCHLORIDE
     Dosage: 25 MG, AS NEEDED
  14. ZOFRAN [Concomitant]
     Active Substance: ONDANSETRON HYDROCHLORIDE
     Dosage: 4 MG, AS NEEDED
  15. LYRICA [Suspect]
     Active Substance: PREGABALIN
     Indication: FIBROMYALGIA
     Dosage: 75 MG, 2X/DAY(ONE IN MORNING AND EVENING)
     Dates: start: 2012, end: 20141004

REACTIONS (1)
  - Pain [Unknown]
